FAERS Safety Report 4803026-9 (Version None)
Quarter: 2005Q4

REPORT INFORMATION
  Report Type: 
  Country: None (occurrence: None)
  Receive Date: 20051019
  Receipt Date: 20050825
  Transmission Date: 20060501
  Serious: Yes (Hospitalization)
  Sender: FDA-Public Use
  Company Number: US-GLAXOSMITHKLINE-A0571844A

PATIENT
  Age: 76 Year
  Sex: Female

DRUGS (5)
  1. AVANDIA [Suspect]
     Dosage: .5TAB PER DAY
     Route: 048
     Dates: start: 20050701
  2. TENORMIN [Concomitant]
  3. LASIX [Concomitant]
  4. LOTREL [Concomitant]
  5. VITAMIN B-12 [Concomitant]

REACTIONS (7)
  - BLOOD GLUCOSE INCREASED [None]
  - CARDIAC FAILURE CONGESTIVE [None]
  - DYSPNOEA [None]
  - GAIT DISTURBANCE [None]
  - OEDEMA [None]
  - RED BLOOD CELL COUNT DECREASED [None]
  - WHITE BLOOD CELL COUNT DECREASED [None]
